FAERS Safety Report 20198821 (Version 5)
Quarter: 2023Q2

REPORT INFORMATION
  Report Type: Report from Study
  Country: CO (occurrence: CO)
  Receive Date: 20211217
  Receipt Date: 20230428
  Transmission Date: 20230721
  Serious: Yes (Death, Life-Threatening, Hospitalization, Other)
  Sender: FDA-Public Use
  Company Number: CO-ABBVIE-21K-036-4202254-00

PATIENT
  Age: 63 Year
  Sex: Female
  Weight: 35 kg

DRUGS (1)
  1. ZEMPLAR [Suspect]
     Active Substance: PARICALCITOL
     Indication: Hyperparathyroidism secondary
     Dosage: 1 UNIT DOSE POST DIALYSIS, FORM STRENGTH: 5 MICROGRAM, POST-DIALYSIS
     Route: 042
     Dates: start: 20210122, end: 20230320

REACTIONS (22)
  - Anaemia [Fatal]
  - Somnolence [Recovering/Resolving]
  - Malaise [Recovering/Resolving]
  - General physical health deterioration [Not Recovered/Not Resolved]
  - Dizziness [Recovering/Resolving]
  - Dialysis related complication [Fatal]
  - Cough [Not Recovered/Not Resolved]
  - Blood pressure abnormal [Recovering/Resolving]
  - Movement disorder [Not Recovered/Not Resolved]
  - Cough [Recovered/Resolved]
  - Immune system disorder [Recovering/Resolving]
  - Angina unstable [Not Recovered/Not Resolved]
  - Constipation [Recovering/Resolving]
  - Gastric disorder [Recovering/Resolving]
  - Visual impairment [Recovering/Resolving]
  - Gait disturbance [Recovering/Resolving]
  - Gastric disorder [Recovering/Resolving]
  - Diarrhoea [Recovering/Resolving]
  - Vomiting [Recovering/Resolving]
  - Malaise [Recovering/Resolving]
  - Gait disturbance [Not Recovered/Not Resolved]
  - Asthenia [Not Recovered/Not Resolved]

NARRATIVE: CASE EVENT DATE: 20211001
